FAERS Safety Report 18875336 (Version 2)
Quarter: 2021Q2

REPORT INFORMATION
  Report Type: Spontaneous
  Country: AR (occurrence: AR)
  Receive Date: 20210211
  Receipt Date: 20210514
  Transmission Date: 20210717
  Serious: Yes (Disabling)
  Sender: FDA-Public Use
  Company Number: AR-AMGEN-ARGSP2021021601

PATIENT
  Age: 52 Year
  Sex: Female

DRUGS (1)
  1. ENBREL [Suspect]
     Active Substance: ETANERCEPT
     Indication: RHEUMATOID ARTHRITIS
     Dosage: 50 MILLIGRAM, QWK
     Route: 065
     Dates: start: 20130612

REACTIONS (4)
  - Insomnia [Unknown]
  - Pain [Unknown]
  - Condition aggravated [Unknown]
  - Swelling [Unknown]

NARRATIVE: CASE EVENT DATE: 20210405
